FAERS Safety Report 10680719 (Version 2)
Quarter: 2015Q4

REPORT INFORMATION
  Report Type: Spontaneous
  Country: US (occurrence: US)
  Receive Date: 20141229
  Receipt Date: 20151228
  Transmission Date: 20160304
  Serious: Yes (Hospitalization)
  Sender: FDA-Public Use
  Company Number: US-SA-2014SA151595

PATIENT
  Age: 55 Year
  Sex: Female
  Weight: 82.1 kg

DRUGS (21)
  1. PLAVIX [Suspect]
     Active Substance: CLOPIDOGREL BISULFATE
     Indication: MYOCARDIAL INFARCTION
     Route: 048
     Dates: start: 20091227, end: 2010
  2. CLONIDINE. [Concomitant]
     Active Substance: CLONIDINE
  3. BENADRYL [Concomitant]
     Active Substance: DIPHENHYDRAMINE HYDROCHLORIDE
     Route: 048
     Dates: start: 20100428
  4. PLAVIX [Suspect]
     Active Substance: CLOPIDOGREL BISULFATE
     Indication: STENT PLACEMENT
     Route: 048
     Dates: start: 20091227, end: 2010
  5. NORVASC [Concomitant]
     Active Substance: AMLODIPINE BESYLATE
  6. FLEXPEN [Concomitant]
     Active Substance: UNSPECIFIED INGREDIENT
     Dates: start: 20100428
  7. LOPRESSOR [Concomitant]
     Active Substance: METOPROLOL TARTRATE
     Route: 042
     Dates: start: 20100428
  8. ASPIRIN. [Concomitant]
     Active Substance: ASPIRIN
  9. CARAFATE [Concomitant]
     Active Substance: SUCRALFATE
  10. CATAPRES [Concomitant]
     Active Substance: CLONIDINE HYDROCHLORIDE
     Route: 048
     Dates: start: 20100428
  11. LASIX [Concomitant]
     Active Substance: FUROSEMIDE
     Route: 042
     Dates: start: 20100428, end: 20100429
  12. APRESOLINE HYDROCHLORIDE [Concomitant]
     Active Substance: HYDRALAZINE HYDROCHLORIDE
  13. IRON [Concomitant]
     Active Substance: IRON
  14. HYDROCHLOROTHIAZIDE. [Concomitant]
     Active Substance: HYDROCHLOROTHIAZIDE
  15. FLAGYL [Concomitant]
     Active Substance: METRONIDAZOLE\METRONIDAZOLE HYDROCHLORIDE
     Route: 042
     Dates: start: 20100428
  16. PLAVIX [Suspect]
     Active Substance: CLOPIDOGREL BISULFATE
     Indication: ACUTE CORONARY SYNDROME
     Route: 048
     Dates: start: 20091227, end: 2010
  17. ACCUPRIL [Concomitant]
     Active Substance: QUINAPRIL HYDROCHLORIDE
  18. LEVAQUIN [Concomitant]
     Active Substance: LEVOFLOXACIN
     Route: 042
     Dates: start: 20100428
  19. GLIPIZIDE. [Concomitant]
     Active Substance: GLIPIZIDE
  20. IMDUR [Concomitant]
     Active Substance: ISOSORBIDE MONONITRATE
  21. NOVOLOG [Concomitant]
     Active Substance: INSULIN ASPART
     Dosage: DOSE:1 UNIT(S)
     Route: 058
     Dates: start: 20100428

REACTIONS (7)
  - Dizziness [Unknown]
  - Asthenia [Unknown]
  - Anaemia [Recovered/Resolved]
  - Epistaxis [Unknown]
  - Fatigue [Unknown]
  - Presyncope [Unknown]
  - Gastrointestinal haemorrhage [Recovered/Resolved]

NARRATIVE: CASE EVENT DATE: 2010
